FAERS Safety Report 10530944 (Version 1)
Quarter: 2014Q4

REPORT INFORMATION
  Report Type: Spontaneous
  Country: IT (occurrence: IT)
  Receive Date: 20141021
  Receipt Date: 20141021
  Transmission Date: 20150528
  Serious: Yes (Hospitalization)
  Sender: FDA-Public Use
  Company Number: IT-TEVA-515719ISR

PATIENT
  Age: 31 Year
  Sex: Female

DRUGS (3)
  1. CITALOPRAM [Suspect]
     Active Substance: CITALOPRAM HYDROBROMIDE
     Indication: INTENTIONAL SELF-INJURY
     Route: 048
     Dates: start: 20140822, end: 20140822
  2. LEXOTAN - 2,5MG/ML GOCCE ORALI SOLUZIONE - ROCHE S.P.A [Suspect]
     Active Substance: BROMAZEPAM
     Indication: INTENTIONAL SELF-INJURY
     Dosage: FORM OF ADMIN: ORAL DROPS, SOLUTION
     Route: 048
     Dates: start: 20140822, end: 20140822
  3. LENDORMIN - 0,25 MG COMPRESSE - BOEHRINGER INGELHEIM ITALIA S.P.A [Suspect]
     Active Substance: BROTIZOLAM
     Indication: INTENTIONAL SELF-INJURY
     Route: 048
     Dates: start: 20140822, end: 20140822

REACTIONS (3)
  - Intentional self-injury [None]
  - Drug abuse [Recovered/Resolved]
  - Sopor [Recovered/Resolved]

NARRATIVE: CASE EVENT DATE: 20140822
